FAERS Safety Report 21597023 (Version 1)
Quarter: 2022Q4

REPORT INFORMATION
  Report Type: Spontaneous
  Country: US (occurrence: US)
  Receive Date: 20221115
  Receipt Date: 20221115
  Transmission Date: 20230113
  Serious: No
  Sender: FDA-Public Use
  Company Number: US-AMNEAL PHARMACEUTICALS-2022-AMRX-00330

PATIENT
  Sex: Female

DRUGS (12)
  1. ISOTRETINOIN [Suspect]
     Active Substance: ISOTRETINOIN
     Indication: Acne conglobata
     Dosage: 1 CAPSULES, 2 /DAY WITH MEALS
     Route: 048
     Dates: start: 2021, end: 20220207
  2. SUNSCREEN [Concomitant]
     Active Substance: HOMOSALATE\OCTINOXATE\OCTISALATE\OXYBENZONE\TITANIUM DIOXIDE
     Indication: Post inflammatory pigmentation change
     Dosage: UNK
     Route: 065
  3. DOXEPIN [Concomitant]
     Active Substance: DOXEPIN
     Indication: Product used for unknown indication
     Dosage: UNK
     Route: 065
  4. HYDROXYZINE [Concomitant]
     Active Substance: HYDROXYZINE HYDROCHLORIDE
     Indication: Product used for unknown indication
     Dosage: UNK
     Route: 065
  5. LYRICA [Concomitant]
     Active Substance: PREGABALIN
     Indication: Product used for unknown indication
     Dosage: UNK
     Route: 065
  6. TRAMADOL [Concomitant]
     Active Substance: TRAMADOL
     Indication: Product used for unknown indication
     Dosage: UNK
     Route: 065
  7. PREVACID [Concomitant]
     Active Substance: LANSOPRAZOLE
     Indication: Product used for unknown indication
     Dosage: UNK
     Route: 065
  8. NASACORT [Concomitant]
     Active Substance: TRIAMCINOLONE ACETONIDE
     Indication: Product used for unknown indication
     Dosage: UNK
     Route: 065
  9. KETOCONAZOLE [Concomitant]
     Active Substance: KETOCONAZOLE
     Indication: Seborrhoeic dermatitis
     Dosage: APPLY TOPICALLY TO SCALP 2-3X WEEKLY EVERY 3 DAYS
     Route: 061
  10. KETOCONAZOLE [Concomitant]
     Active Substance: KETOCONAZOLE
     Dosage: APPLY TO SCALP 3-4X/WEEK
     Route: 061
  11. VITAMIN D NOS [Concomitant]
     Active Substance: VITAMIN D NOS
     Indication: Product used for unknown indication
     Dosage: UNK
     Route: 065
     Dates: start: 2021
  12. LATUDA [Concomitant]
     Active Substance: LURASIDONE HYDROCHLORIDE
     Indication: Product used for unknown indication
     Dosage: UNK
     Route: 065
     Dates: start: 2022

REACTIONS (8)
  - Therapeutic product effect incomplete [Unknown]
  - Dry skin [Unknown]
  - Depression [Unknown]
  - Lip dry [Unknown]
  - Dry eye [Recovered/Resolved]
  - Headache [Unknown]
  - Mood altered [Unknown]
  - Pyogenic granuloma [Unknown]

NARRATIVE: CASE EVENT DATE: 20210101
